FAERS Safety Report 5288779-0 (Version None)
Quarter: 2007Q2

REPORT INFORMATION
  Report Type: 
  Country: None (occurrence: None)
  Receive Date: 20070405
  Receipt Date: 20070322
  Transmission Date: 20071010
  Serious: No
  Sender: FDA-Public Use
  Company Number: US-ELI_LILLY_AND_COMPANY-US200703004671

PATIENT
  Age: 59 Year
  Sex: Female

DRUGS (5)
  1. CYMBALTA [Suspect]
     Indication: PAIN
     Dosage: 60 MG, UNK
  2. FLEXERIL [Concomitant]
  3. NEXIUM [Concomitant]
  4. DARVOCET [Concomitant]
  5. ELAVIL [Concomitant]
     Dosage: 25 MG, UNK

REACTIONS (3)
  - ALANINE AMINOTRANSFERASE INCREASED [None]
  - NAUSEA [None]
  - PALPITATIONS [None]
